FAERS Safety Report 19771170 (Version 3)
Quarter: 2022Q2

REPORT INFORMATION
  Report Type: Spontaneous
  Country: US (occurrence: US)
  Receive Date: 20210831
  Receipt Date: 20220623
  Transmission Date: 20220721
  Serious: Yes (Other)
  Sender: FDA-Public Use
  Company Number: US-INCYTE CORPORATION-2021IN007563

PATIENT

DRUGS (2)
  1. JAKAFI [Suspect]
     Active Substance: RUXOLITINIB
     Indication: Myelodysplastic syndrome
     Dosage: 5 MILLIGRAM, QOD
     Route: 048
     Dates: start: 202105
  2. JAKAFI [Suspect]
     Active Substance: RUXOLITINIB
     Dosage: 5 MILLIGRAM, BID
     Route: 048
     Dates: start: 202105

REACTIONS (5)
  - Haemoglobin decreased [Unknown]
  - Somnolence [Unknown]
  - Fatigue [Unknown]
  - Off label use [Unknown]
  - Anaemia [Unknown]

NARRATIVE: CASE EVENT DATE: 20210501
